FAERS Safety Report 11105707 (Version 1)
Quarter: 2015Q2

REPORT INFORMATION
  Report Type: Spontaneous
  Country: None (occurrence: None)
  Receive Date: 20150508
  Receipt Date: 20150508
  Transmission Date: 20150821
  Serious: No
  Sender: FDA-Public Use
  Company Number: None

PATIENT

DRUGS (8)
  1. RELYYT PATCH [Suspect]
     Active Substance: CAPSAICIN\MENTHOL
     Indication: PAIN
     Dosage: TOPICAL PAIN PATCH
     Route: 061
  2. LEXILIDO [Suspect]
     Active Substance: LEVOMENTHOL\LIDOCAINE
     Indication: PAIN
     Dosage: TOPICAL PAIN PATCH
     Route: 061
  3. SINELEE [Suspect]
     Active Substance: CAPSAICIN\MENTHOL
     Indication: PAIN
     Dosage: TOPICAL PAIN PATCH
     Route: 061
  4. SINELEE [Suspect]
     Active Substance: CAPSAICIN\MENTHOL
     Dosage: TOPICAL PAIN PATCH
     Route: 061
  5. QROXIN PATCH [Suspect]
     Active Substance: CAPSAICIN\MENTHOL
     Indication: PAIN
     Dosage: TOPICAL PAIN PATCH
     Route: 061
  6. RELYYKS PATCH [Suspect]
     Active Substance: LIDOCAINE\MENTHOL
     Indication: PAIN
     Dosage: TOPICAL PAIN PATCH
     Route: 061
  7. LIMENCIN PATCH [Suspect]
     Active Substance: LIDOCAINE HYDROCHLORIDE\MENTHOL
     Indication: PAIN
     Dosage: TOPICAL PAIN PATCH
     Route: 061
  8. LEXICAPS [Suspect]
     Active Substance: CAPSAICIN\LEVOMENTHOL
     Indication: PAIN
     Dosage: TOPICAL PAIN PATCH
     Route: 061

REACTIONS (1)
  - Product label confusion [None]
